FAERS Safety Report 7315200-0 (Version None)
Quarter: 2011Q1

REPORT INFORMATION
  Report Type: 
  Country: None (occurrence: None)
  Receive Date: 20110225
  Receipt Date: 20101027
  Transmission Date: 20110831
  Serious: Yes (Hospitalization)
  Sender: FDA-Public Use
  Company Number: US-ROCHE-737769

PATIENT
  Age: 13 Year
  Sex: Female

DRUGS (2)
  1. IRINOTECAN HCL [Suspect]
     Indication: GLIOMA
     Dosage: FREQUENCY: OVER 90 MINS EVERY 2 WEEKS STARTING ON DAY 15.CYCLES 4 WEEKS.LAST DOSE: 2 AUG 2010.
     Route: 042
     Dates: start: 20090209
  2. BEVACIZUMAB [Suspect]
     Indication: GLIOMA
     Dosage: FREQUENCY: OVER 30-90 MINS ON DAYS 1 AND 15. LAST DATE : 4 OCTOBER 2010 (CYCLE 18, DAY 1)
     Route: 042
     Dates: start: 20090209

REACTIONS (1)
  - OSTEONECROSIS [None]
